FAERS Safety Report 11624993 (Version 1)
Quarter: 2015Q4

REPORT INFORMATION
  Report Type: Spontaneous
  Country: US (occurrence: US)
  Receive Date: 20151013
  Receipt Date: 20151013
  Transmission Date: 20160304
  Serious: No
  Sender: FDA-Public Use
  Company Number: US-NOVOPROD-460362

PATIENT
  Age: 38 Year
  Sex: Male

DRUGS (1)
  1. SAXENDA [Suspect]
     Active Substance: LIRAGLUTIDE
     Indication: WEIGHT DECREASED
     Route: 058

REACTIONS (3)
  - Pain [Not Recovered/Not Resolved]
  - Furuncle [Not Recovered/Not Resolved]
  - Cyst [Not Recovered/Not Resolved]
